FAERS Safety Report 24405479 (Version 1)
Quarter: 2024Q4

REPORT INFORMATION
  Report Type: Spontaneous
  Country: NO (occurrence: NO)
  Receive Date: 20241007
  Receipt Date: 20241007
  Transmission Date: 20250115
  Serious: Yes (Hospitalization, Other)
  Sender: BAYER
  Company Number: NO-BAYER-2024A138343

PATIENT
  Sex: Female
  Weight: 82 kg

DRUGS (2)
  1. YASMIN [Suspect]
     Active Substance: DROSPIRENONE\ETHINYL ESTRADIOL
     Indication: Contraception
     Dosage: UNK
     Route: 048
     Dates: start: 202207
  2. PANTOPRAZOLE [Concomitant]
     Active Substance: PANTOPRAZOLE
     Indication: Gastrooesophageal reflux disease

REACTIONS (24)
  - Pulmonary embolism [Recovering/Resolving]
  - Deep vein thrombosis [Recovering/Resolving]
  - Back pain [None]
  - May-Thurner syndrome [None]
  - Pain in extremity [None]
  - Decreased appetite [None]
  - Nausea [None]
  - Swelling [None]
  - Anaesthesia [None]
  - Gait disturbance [None]
  - Abdominal pain lower [None]
  - Flank pain [None]
  - Discomfort [None]
  - Sick leave [None]
  - Pyrexia [None]
  - Abdominal pain upper [None]
  - Spinal cord disorder [None]
  - Dysmenorrhoea [None]
  - Erythema [None]
  - Hypoaesthesia [None]
  - Anxiety [None]
  - Depression [None]
  - Asthenia [None]
  - Headache [None]

NARRATIVE: CASE EVENT DATE: 20220825
